FAERS Safety Report 18503074 (Version 1)
Quarter: 2020Q4

REPORT INFORMATION
  Report Type: Spontaneous
  Country: IT (occurrence: IT)
  Receive Date: 20201113
  Receipt Date: 20201113
  Transmission Date: 20210114
  Serious: Yes (Other)
  Sender: FDA-Public Use
  Company Number: IT-TEVA-2020-IT-1848309

PATIENT
  Age: 62 Year
  Sex: Female

DRUGS (2)
  1. ALENDRONATO TEVA [Suspect]
     Active Substance: ALENDRONIC ACID
     Indication: OSTEOPOROSIS
     Dates: start: 20201030
  2. NATECAL D3 [Concomitant]
     Active Substance: CALCIUM CARBONATE\CHOLECALCIFEROL
     Dosage: IN THE MORNING AND IN THE EVENING, FOR MORE THAN 1 YEAR

REACTIONS (1)
  - Haematochezia [Unknown]
